FAERS Safety Report 17404487 (Version 1)
Quarter: 2020Q1

REPORT INFORMATION
  Report Type: Spontaneous
  Country: FR (occurrence: FR)
  Receive Date: 20200211
  Receipt Date: 20200211
  Transmission Date: 20200409
  Serious: Yes (Hospitalization)
  Sender: FDA-Public Use
  Company Number: FR-ALLERGAN-2005468US

PATIENT
  Sex: Female

DRUGS (3)
  1. ESCITALOPRAM OXALATE - BP [Suspect]
     Active Substance: ESCITALOPRAM OXALATE
     Indication: DEPRESSION
     Dosage: 1 DF, QD
     Route: 048
     Dates: end: 20190219
  2. ATARAX [Suspect]
     Active Substance: HYDROXYZINE HYDROCHLORIDE
     Indication: SEDATION
     Dosage: 1 DF, QD
     Route: 048
     Dates: end: 20190219
  3. TIAPRIDAL [Suspect]
     Active Substance: TIAPRIDE HYDROCHLORIDE
     Indication: AGITATION
     Dosage: 1 DF, QD
     Route: 048
     Dates: start: 20190130, end: 20190219

REACTIONS (3)
  - Moaning [Recovering/Resolving]
  - Disturbance in attention [Recovering/Resolving]
  - Decreased eye contact [Recovering/Resolving]

NARRATIVE: CASE EVENT DATE: 20190203
